FAERS Safety Report 6172195-3 (Version None)
Quarter: 2009Q2

REPORT INFORMATION
  Report Type: 
  Country: None (occurrence: None)
  Receive Date: 20090427
  Receipt Date: 20090427
  Transmission Date: 20091009
  Serious: Yes (Hospitalization)
  Sender: FDA-Public Use
  Company Number: None

PATIENT
  Age: 49 Year
  Sex: Female
  Weight: 90.7194 kg

DRUGS (1)
  1. NAIR CRM [Suspect]
     Dosage: RUB ON SKIN 3 MINUTES
     Dates: start: 20090415, end: 20090415

REACTIONS (5)
  - APPLICATION SITE IRRITATION [None]
  - APPLICATION SITE PRURITUS [None]
  - PAIN [None]
  - PRODUCT LOT NUMBER ISSUE [None]
  - SKIN INFECTION [None]
